FAERS Safety Report 8153348-1 (Version None)
Quarter: 2012Q1

REPORT INFORMATION
  Report Type: 
  Country: None (occurrence: None)
  Receive Date: 20120221
  Receipt Date: 20120208
  Transmission Date: 20120608
  Serious: Yes (Other)
  Sender: FDA-Public Use
  Company Number: MX-ROCHE-1040836

PATIENT
  Age: 10 Year
  Sex: Female

DRUGS (6)
  1. XOLAIR [Suspect]
     Indication: DERMATITIS ATOPIC
     Dates: start: 20111216
  2. HYDROXYZINE [Concomitant]
     Dates: start: 20111010
  3. ERYTHROMYCIN [Concomitant]
     Indication: PHARYNGITIS
     Dates: start: 20111118
  4. ELIDEL [Concomitant]
     Indication: DERMATITIS ATOPIC
     Dates: start: 20111216
  5. LEVOCETIRIZINE DIHYDROCHLORIDE [Concomitant]
     Indication: DERMATITIS ATOPIC
     Dates: start: 20111010
  6. XOLAIR [Suspect]
     Dates: start: 20120127

REACTIONS (1)
  - DERMATITIS INFECTED [None]
